FAERS Safety Report 26130921 (Version 2)
Quarter: 2025Q4

REPORT INFORMATION
  Report Type: Spontaneous
  Country: GB (occurrence: GB)
  Receive Date: 20251208
  Receipt Date: 20251226
  Transmission Date: 20260118
  Serious: Yes (Hospitalization, Other)
  Sender: COSETTE PHARMACEUTICALS INC
  Company Number: GB-MLMSERVICE-20251120-PI721505-00338-1

PATIENT
  Age: 46 Year
  Sex: Female

DRUGS (4)
  1. ZOLPIDEM TARTRATE [Suspect]
     Active Substance: ZOLPIDEM TARTRATE
     Indication: Insomnia
     Dosage: QD, 50-200 MG OF ZOLPIDEM DAILY. TAKING VARYING AMOUNTS OF THESE TABLETS AT DIFFERENT TIMES OF DAY
     Route: 065
  2. ZOPICLONE [Concomitant]
     Active Substance: ZOPICLONE
     Indication: Prophylaxis
     Route: 065
  3. ATORVASTATIN;IRBESARTAN [Concomitant]
     Indication: Prophylaxis
     Dosage: UNK
     Route: 065
  4. ASPIRIN [Concomitant]
     Active Substance: ASPIRIN
     Indication: Cerebrovascular accident
     Route: 065

REACTIONS (7)
  - Muscular weakness [Recovered/Resolved]
  - Sensory loss [Recovered/Resolved]
  - Malaise [Recovered/Resolved]
  - Tongue biting [Recovered/Resolved]
  - Drug withdrawal convulsions [Recovered/Resolved]
  - Intentional product misuse [Unknown]
  - Intentional overdose [Unknown]
